FAERS Safety Report 21310663 (Version 2)
Quarter: 2022Q3

REPORT INFORMATION
  Report Type: Spontaneous
  Country: DE (occurrence: DE)
  Receive Date: 20220909
  Receipt Date: 20220919
  Transmission Date: 20221026
  Serious: Yes (Other)
  Sender: FDA-Public Use
  Company Number: DE-BAYER-2022A124510

PATIENT
  Sex: Male

DRUGS (4)
  1. XARELTO [Suspect]
     Active Substance: RIVAROXABAN
     Indication: Aortic aneurysm
     Dosage: 15 MG
     Route: 048
  2. XARELTO [Suspect]
     Active Substance: RIVAROXABAN
     Indication: Stent placement
  3. ASPIRIN [Concomitant]
     Active Substance: ASPIRIN
     Indication: Aortic aneurysm
     Dosage: 100 MG
  4. ASPIRIN [Concomitant]
     Active Substance: ASPIRIN
     Indication: Stent placement

REACTIONS (2)
  - Gastric ulcer [Not Recovered/Not Resolved]
  - Off label use [Unknown]
